FAERS Safety Report 9251845 (Version 1)
Quarter: 2013Q1

REPORT INFORMATION
  Report Type: Spontaneous
  Country: US (occurrence: None)
  Receive Date: 20130305
  Receipt Date: 20130305
  Transmission Date: 20140127
  Serious: Yes (Hospitalization)
  Sender: FDA-Public Use
  Company Number: 163-21880-12071829

PATIENT
  Age: 78 Year
  Sex: Male

DRUGS (9)
  1. REVLIMID [Suspect]
     Indication: PLASMA CELL MYELOMA
     Dosage: 15 MG, 21 IN 21 D, PO
     Route: 048
     Dates: start: 20120702
  2. LOVENOX [Suspect]
  3. ASPIRIN [Suspect]
  4. VITAMIN D (ERGOCALCIFEROL) [Suspect]
  5. PREDNISONE (PREDNISONE) [Suspect]
  6. DEXAMETHASONE (DEXAMETHASONE) [Suspect]
  7. ALLOPURINOL [Suspect]
  8. TRAZODONE HCL [Suspect]
  9. PERCOCET [Suspect]

REACTIONS (1)
  - Pulmonary embolism [None]
